FAERS Safety Report 5066679-9 (Version None)
Quarter: 2006Q3

REPORT INFORMATION
  Report Type: 
  Country: None (occurrence: None)
  Receive Date: 20060801
  Receipt Date: 20060727
  Transmission Date: 20061208
  Serious: Yes (Other)
  Sender: FDA-Public Use
  Company Number: US-GLAXOSMITHKLINE-A0613867A

PATIENT
  Age: 18 Year
  Sex: Female

DRUGS (2)
  1. LAMICTAL [Suspect]
  2. IRON SUPPLEMENT [Concomitant]
     Indication: NUTRITIONAL SUPPORT

REACTIONS (3)
  - CONVULSION [None]
  - NORMAL DELIVERY [None]
  - PRE-ECLAMPSIA [None]
